FAERS Safety Report 18639747 (Version 2)
Quarter: 2021Q1

REPORT INFORMATION
  Report Type: Report from Study
  Country: US (occurrence: US)
  Receive Date: 20201220
  Receipt Date: 20210215
  Transmission Date: 20210419
  Serious: Yes (Death)
  Sender: FDA-Public Use
  Company Number: US-AMGEN-USACT2020206338

PATIENT
  Age: 66 Year
  Sex: Male

DRUGS (3)
  1. IPILIMUMAB [Suspect]
     Active Substance: IPILIMUMAB
     Indication: MALIGNANT MELANOMA
     Dosage: UNK
     Route: 065
     Dates: start: 20130502, end: 20130730
  2. TALIMOGENE LAHERPAREPVEC [Suspect]
     Active Substance: TALIMOGENE LAHERPAREPVEC
     Indication: MALIGNANT MELANOMA
     Dosage: 4 MILLILITER
     Route: 065
     Dates: start: 20130328, end: 20130910
  3. VEMURAFENIB. [Concomitant]
     Active Substance: VEMURAFENIB
     Dosage: UNK
     Dates: start: 20131023, end: 20140103

REACTIONS (1)
  - Death [Fatal]

NARRATIVE: CASE EVENT DATE: 20140114
